FAERS Safety Report 9259440 (Version 1)
Quarter: 2013Q2

REPORT INFORMATION
  Report Type: Spontaneous
  Country: DE (occurrence: DE)
  Receive Date: 20130427
  Receipt Date: 20130427
  Transmission Date: 20140414
  Serious: Yes (Death, Other)
  Sender: FDA-Public Use
  Company Number: DE-009507513-1304DEU015522

PATIENT
  Age: 60 Year
  Sex: Male

DRUGS (4)
  1. VELMETIA [Suspect]
     Indication: TYPE 2 DIABETES MELLITUS
     Dosage: UNK
     Route: 048
     Dates: start: 201007
  2. SIMVASTATIN [Concomitant]
     Route: 048
  3. DIOVAN [Concomitant]
  4. METOHEXAL SUCC [Concomitant]

REACTIONS (1)
  - Pancreatic carcinoma [Fatal]
